FAERS Safety Report 5714976-3 (Version None)
Quarter: 2008Q2

REPORT INFORMATION
  Report Type: 
  Country: None (occurrence: None)
  Receive Date: 20080423
  Receipt Date: 20080416
  Transmission Date: 20081010
  Serious: Yes (Hospitalization)
  Sender: FDA-Public Use
  Company Number: US-SANOFI-SYNTHELABO-A03200801474

PATIENT
  Age: 72 Year
  Sex: Female

DRUGS (3)
  1. DIOVAN [Concomitant]
     Indication: DRUG USE FOR UNKNOWN INDICATION
     Dosage: UNK
     Route: 065
  2. GLIPIZIDE [Concomitant]
     Indication: DRUG USE FOR UNKNOWN INDICATION
     Dosage: UNK
     Route: 065
  3. PLAVIX [Suspect]
     Indication: PERIPHERAL ARTERIAL OCCLUSIVE DISEASE
     Route: 048
     Dates: start: 20071001, end: 20071011

REACTIONS (5)
  - ARTHRALGIA [None]
  - BLOOD ELECTROLYTES ABNORMAL [None]
  - FAECES DISCOLOURED [None]
  - RHEUMATIC FEVER [None]
  - RHEUMATOID ARTHRITIS [None]
